FAERS Safety Report 10513695 (Version 2)
Quarter: 2014Q4

REPORT INFORMATION
  Report Type: Spontaneous
  Country: GB (occurrence: GB)
  Receive Date: 20141013
  Receipt Date: 20141013
  Transmission Date: 20150528
  Serious: Yes (Other)
  Sender: FDA-Public Use
  Company Number: PHFR2014GB006193

PATIENT
  Age: 24 Year
  Sex: Female

DRUGS (3)
  1. SIGNIFOR [Suspect]
     Active Substance: PASIREOTIDE
     Dosage: 300 MG, BID
  2. DDAVP//DESMOPRESSIN [Concomitant]
     Dosage: 400 MG, BID
     Route: 048
  3. SIGNIFOR [Suspect]
     Active Substance: PASIREOTIDE
     Dosage: 600 MG, UNK
     Route: 058
     Dates: start: 20140824

REACTIONS (3)
  - Adrenal insufficiency [Recovered/Resolved]
  - Fatigue [Unknown]
  - Decreased appetite [Unknown]

NARRATIVE: CASE EVENT DATE: 20140901
